FAERS Safety Report 4706995-0 (Version None)
Quarter: 2005Q3

REPORT INFORMATION
  Report Type: 
  Country: None (occurrence: None)
  Receive Date: 20050705
  Receipt Date: 20050705
  Transmission Date: 20060218
  Serious: Yes (Hospitalization)
  Sender: FDA-Public Use
  Company Number: None

PATIENT
  Age: 42 Year
  Sex: Female
  Weight: 61.2356 kg

DRUGS (1)
  1. LEVAQUIN [Suspect]
     Dosage: INTRAVENOUS
     Route: 042
     Dates: start: 20050619, end: 20050619

REACTIONS (1)
  - ANAPHYLACTIC REACTION [None]
